FAERS Safety Report 8208689-6 (Version None)
Quarter: 2012Q1

REPORT INFORMATION
  Report Type: 
  Country: None (occurrence: None)
  Receive Date: 20120314
  Receipt Date: 20120120
  Transmission Date: 20120608
  Serious: Yes (Hospitalization)
  Sender: FDA-Public Use
  Company Number: US-ROCHE-1013809

PATIENT
  Sex: Female
  Weight: 95.794 kg

DRUGS (15)
  1. METHOTREXATE [Concomitant]
     Dates: start: 20080725
  2. BLINDED OCRELIZUMAB [Suspect]
     Indication: RHEUMATOID ARTHRITIS
     Dosage: DATE OF LAST DOSE PRIOR TO SAE 16/MAR/2009
     Route: 042
     Dates: start: 20080912
  3. CARBOPLATIN [Suspect]
     Indication: BREAST CANCER
     Dates: start: 20111125
  4. HERCEPTIN [Suspect]
     Indication: BREAST CANCER
     Dates: start: 20111125
  5. DOCETAXEL [Suspect]
     Indication: BREAST CANCER
     Dates: start: 20111125
  6. FUROSEMIDE [Concomitant]
     Dates: start: 20080730
  7. IRON SULFATETHIAMIN COMPOUND TAB [Concomitant]
     Dates: start: 20101205
  8. PRILOSEC OTC [Concomitant]
     Dates: start: 20090816
  9. AMITRIPTYLINE HCL [Concomitant]
     Dates: start: 20111206
  10. ATENOLOL [Concomitant]
     Dates: start: 20020522
  11. PREDNISONE TAB [Concomitant]
     Dates: start: 20050912
  12. AMITRIPTYLINE HCL [Concomitant]
  13. AMITRIPTYLINE HCL [Concomitant]
     Dates: start: 20040526
  14. TRAMADOL HCL [Concomitant]
     Dates: start: 20040526
  15. FOLIC ACID [Concomitant]
     Dates: start: 20010309

REACTIONS (2)
  - DEHYDRATION [None]
  - RENAL FAILURE ACUTE [None]
